FAERS Safety Report 5027376-9 (Version None)
Quarter: 2006Q2

REPORT INFORMATION
  Report Type: 
  Country: None (occurrence: None)
  Receive Date: 20060615
  Receipt Date: 20060608
  Transmission Date: 20061013
  Serious: Yes (Other)
  Sender: FDA-Public Use
  Company Number: US-MERCK-0606USA01658

PATIENT
  Sex: Male

DRUGS (1)
  1. CRIXIVAN [Suspect]
     Route: 048

REACTIONS (1)
  - CRYSTAL URINE [None]
